FAERS Safety Report 20466471 (Version 4)
Quarter: 2024Q2

REPORT INFORMATION
  Report Type: Other
  Country: JP (occurrence: JP)
  Receive Date: 20220213
  Receipt Date: 20240528
  Transmission Date: 20240716
  Serious: Yes (Other)
  Sender: FDA-Public Use
  Company Number: JP-CHUGAI-2022000751

PATIENT
  Age: 59 Year
  Sex: Female

DRUGS (1)
  1. ACTEMRA [Suspect]
     Active Substance: TOCILIZUMAB
     Indication: Rheumatoid arthritis
     Dosage: 400 MILLIGRAM, ONCE/4WEEKS
     Route: 042
     Dates: start: 20160901, end: 20191101

REACTIONS (3)
  - Cutaneous sarcoidosis [Recovered/Resolved]
  - Pulmonary sarcoidosis [Recovered/Resolved]
  - Ocular sarcoidosis [Recovered/Resolved]

NARRATIVE: CASE EVENT DATE: 20190301
